FAERS Safety Report 4320785-2 (Version None)
Quarter: 2004Q1

REPORT INFORMATION
  Report Type: 
  Country: None (occurrence: None)
  Receive Date: 20040318
  Receipt Date: 20040303
  Transmission Date: 20041129
  Serious: Yes (Hospitalization)
  Sender: FDA-Public Use
  Company Number: 235281

PATIENT
  Age: 25 Year
  Sex: Female
  Weight: 96 kg

DRUGS (5)
  1. ACTRAPID PENFILL HM(GE) 3ML (ACTRAPID PENFILL HM(GE) 3 ML) SOLUTION FO [Suspect]
     Indication: DIABETES MELLITUS INSULIN-DEPENDENT
     Dosage: SEE IMAGE
     Route: 057
     Dates: start: 20031003
  2. INSULATARD PENFILL (INSULIN HUMAN) [Concomitant]
  3. MULTIVITAMIN [Concomitant]
  4. IRON (IRON) [Concomitant]
  5. METYLDOPA (METHYLDOPA) [Concomitant]

REACTIONS (6)
  - BLOOD GLUCOSE FLUCTUATION [None]
  - BLOOD PRESSURE INCREASED [None]
  - GLYCOSYLATED HAEMOGLOBIN INCREASED [None]
  - METABOLIC DISORDER [None]
  - OEDEMA [None]
  - PROTEINURIA [None]
